FAERS Safety Report 5118681-6 (Version None)
Quarter: 2006Q4

REPORT INFORMATION
  Report Type: 
  Country: None (occurrence: None)
  Receive Date: 20061002
  Receipt Date: 20060918
  Transmission Date: 20070319
  Serious: Yes (Hospitalization)
  Sender: FDA-Public Use
  Company Number: US-GLAXOSMITHKLINE-A0620883A

PATIENT
  Age: 70 Year
  Sex: Male
  Weight: 78.6 kg

DRUGS (6)
  1. BEXXAR [Suspect]
     Indication: NON-HODGKIN'S LYMPHOMA
     Dosage: 450MG SINGLE DOSE
     Route: 042
     Dates: start: 20060915, end: 20060915
  2. IODINE I 131 TOSITUMOMAB [Suspect]
     Indication: NON-HODGKIN'S LYMPHOMA
     Dosage: 5MCI SINGLE DOSE
     Route: 042
     Dates: start: 20060915, end: 20060915
  3. SSKI [Suspect]
     Route: 048
  4. AMIODARONE HCL [Concomitant]
     Dosage: 200MG PER DAY
     Route: 048
  5. PRILOSEC [Concomitant]
     Dosage: 40MG PER DAY
     Route: 048
  6. MULTI-VITAMIN [Concomitant]

REACTIONS (2)
  - DYSPHAGIA [None]
  - ODYNOPHAGIA [None]
